FAERS Safety Report 13883918 (Version 1)
Quarter: 2017Q3

REPORT INFORMATION
  Report Type: Spontaneous
  Country: US (occurrence: US)
  Receive Date: 20170815
  Receipt Date: 20170815
  Transmission Date: 20171127
  Serious: Yes (Hospitalization)
  Sender: FDA-Public Use
  Company Number: None

PATIENT
  Age: 60 Year
  Sex: Female
  Weight: 66.2 kg

DRUGS (2)
  1. GAMMAPLEX [Suspect]
     Active Substance: HUMAN IMMUNOGLOBULIN G
     Indication: POLYMYOSITIS
     Route: 041
     Dates: start: 20170801, end: 20170802
  2. GAMMAPLEX [Suspect]
     Active Substance: HUMAN IMMUNOGLOBULIN G
     Indication: POLYMYOSITIS
     Dosage: ?          OTHER FREQUENCY:DAILY X 2 DAYS;?
     Route: 041
     Dates: start: 20170801, end: 20170802

REACTIONS (4)
  - Lung disorder [None]
  - Respiratory symptom [None]
  - Body temperature increased [None]
  - Chest discomfort [None]

NARRATIVE: CASE EVENT DATE: 20170802
